FAERS Safety Report 7770393-6 (Version None)
Quarter: 2011Q3

REPORT INFORMATION
  Report Type: 
  Country: None (occurrence: None)
  Receive Date: 20110922
  Receipt Date: 20110602
  Transmission Date: 20111222
  Serious: No
  Sender: FDA-Public Use
  Company Number: US-ASTRAZENECA-2011SE34142

PATIENT
  Age: 98 Year
  Sex: Female

DRUGS (5)
  1. SEROQUEL [Suspect]
     Indication: DEPRESSION
     Route: 048
  2. ATIVAN [Concomitant]
  3. PAMELOR [Concomitant]
  4. AMITRIPTYLINE HCL [Concomitant]
  5. SEROQUEL [Suspect]
     Indication: DEMENTIA
     Route: 048

REACTIONS (4)
  - DECREASED APPETITE [None]
  - AGITATION [None]
  - CONFUSIONAL STATE [None]
  - MUSCLE TWITCHING [None]
